FAERS Safety Report 23064358 (Version 1)
Quarter: 2023Q4

REPORT INFORMATION
  Report Type: Report from Study
  Country: CA (occurrence: CA)
  Receive Date: 20231013
  Receipt Date: 20231013
  Transmission Date: 20240110
  Serious: Yes (Death)
  Sender: FDA-Public Use
  Company Number: CA-ABBVIE-5449057

PATIENT
  Sex: Female

DRUGS (1)
  1. BOTOX [Suspect]
     Active Substance: ONABOTULINUMTOXINA
     Indication: Cerebrovascular accident
     Dosage: TIME INTERVAL: AS NECESSARY: FREQUENCY- EVERY 3 MONTHS
     Route: 030

REACTIONS (2)
  - Death [Fatal]
  - Off label use [Unknown]
